FAERS Safety Report 4356739-X (Version None)
Quarter: 2004Q2

REPORT INFORMATION
  Report Type: 
  Country: None (occurrence: None)
  Receive Date: 20040507
  Receipt Date: 20040428
  Transmission Date: 20050107
  Serious: No
  Sender: FDA-Public Use
  Company Number: 2004UW08168

PATIENT
  Sex: Female

DRUGS (4)
  1. SEROQUEL [Suspect]
     Dosage: 700 MG DAILY PO
     Route: 048
     Dates: start: 20020101
  2. TRAZODONE HCL [Concomitant]
  3. HALDOL [Concomitant]
  4. KLONOPIN [Concomitant]

REACTIONS (4)
  - BONE NEOPLASM MALIGNANT [None]
  - COUGH [None]
  - ILL-DEFINED DISORDER [None]
  - RIB FRACTURE [None]
